FAERS Safety Report 18061942 (Version 2)
Quarter: 2021Q1

REPORT INFORMATION
  Report Type: Spontaneous
  Country: US (occurrence: US)
  Receive Date: 20200723
  Receipt Date: 20210129
  Transmission Date: 20210419
  Serious: Yes (Other)
  Sender: FDA-Public Use
  Company Number: US-TEVA-2020-US-1806323

PATIENT
  Age: 74 Year
  Sex: Female
  Weight: 58 kg

DRUGS (7)
  1. LEVETIRACETAM. [Concomitant]
     Active Substance: LEVETIRACETAM
     Indication: CEREBROVASCULAR ACCIDENT
     Dosage: 500 MILLIGRAM DAILY; ONGOING
     Dates: start: 2012
  2. AMLODIPINE W/VALSARTAN TEVA [Suspect]
     Active Substance: AMLODIPINE\VALSARTAN
     Dosage: AMLODIPINE 5MG/VALSARTAN 160 MG
     Route: 065
     Dates: start: 20160116, end: 20161111
  3. NEXIUM [Concomitant]
     Active Substance: ESOMEPRAZOLE MAGNESIUM
     Indication: GASTROOESOPHAGEAL REFLUX DISEASE
     Dosage: 40 MILLIGRAM DAILY;
     Dates: start: 2010, end: 2017
  4. GABAPENTIN. [Concomitant]
     Active Substance: GABAPENTIN
     Indication: CEREBROVASCULAR ACCIDENT
     Dates: start: 2012, end: 2017
  5. LEVOTHYROXINE. [Concomitant]
     Active Substance: LEVOTHYROXINE
     Indication: THYROID DISORDER
     Dosage: 112 MILLIGRAM DAILY; ONGOING
     Dates: start: 2010
  6. AMLODIPINE W/VALSARTAN TEVA [Suspect]
     Active Substance: AMLODIPINE\VALSARTAN
     Indication: HYPERTENSION
     Dosage: AMLODIPINE 5MG/VALSARTAN 160 MG
     Route: 065
     Dates: start: 20150605, end: 20170122
  7. ENBREL [Concomitant]
     Active Substance: ETANERCEPT
     Indication: ARTHRITIS
     Dosage: 50 MILLIGRAM DAILY; ONGOING
     Dates: start: 2008

REACTIONS (1)
  - Colon cancer [Recovered/Resolved]
